FAERS Safety Report 13995373 (Version 1)
Quarter: 2017Q3

REPORT INFORMATION
  Report Type: Spontaneous
  Country: US (occurrence: US)
  Receive Date: 20170921
  Receipt Date: 20170921
  Transmission Date: 20171128
  Serious: Yes (Hospitalization, Other)
  Sender: FDA-Public Use
  Company Number: US-AMGEN-USASP2017141112

PATIENT
  Age: 71 Year
  Sex: Male

DRUGS (4)
  1. HUMIRA [Suspect]
     Active Substance: ADALIMUMAB
     Indication: RHEUMATOID ARTHRITIS
     Dosage: UNK
     Route: 065
  2. HUMIRA [Suspect]
     Active Substance: ADALIMUMAB
     Indication: ANKYLOSING SPONDYLITIS
  3. ENBREL [Suspect]
     Active Substance: ETANERCEPT
     Indication: RHEUMATOID ARTHRITIS
     Dosage: UNK
     Route: 058
  4. ENBREL [Suspect]
     Active Substance: ETANERCEPT
     Indication: ANKYLOSING SPONDYLITIS
     Dosage: UNK
     Route: 058
     Dates: start: 201709

REACTIONS (10)
  - Injection site pain [Unknown]
  - Accidental exposure to product [Unknown]
  - Neuropathy peripheral [Unknown]
  - Staphylococcal infection [Unknown]
  - Underdose [Unknown]
  - Weight decreased [Unknown]
  - Nephrolithiasis [Unknown]
  - Adverse drug reaction [Unknown]
  - Pulmonary embolism [Unknown]
  - Injection site erythema [Unknown]

NARRATIVE: CASE EVENT DATE: 201709
